FAERS Safety Report 19484225 (Version 3)
Quarter: 2021Q3

REPORT INFORMATION
  Report Type: Spontaneous
  Country: US (occurrence: US)
  Receive Date: 20210701
  Receipt Date: 20210825
  Transmission Date: 20211014
  Serious: No
  Sender: FDA-Public Use
  Company Number: US-CELGENEUS-USA-20210607922

PATIENT
  Age: 82 Year
  Sex: Female
  Weight: 64.47 kg

DRUGS (3)
  1. DARZALEX [Concomitant]
     Active Substance: DARATUMUMAB
     Indication: PLASMA CELL MYELOMA
     Route: 065
     Dates: start: 20210606
  2. DEXAMETHASONE. [Concomitant]
     Active Substance: DEXAMETHASONE
     Indication: PLASMA CELL MYELOMA
     Route: 065
     Dates: start: 20210606
  3. REVLIMID [Suspect]
     Active Substance: LENALIDOMIDE
     Indication: PLASMA CELL MYELOMA
     Dosage: 10 MILLIGRAMS
     Route: 048
     Dates: start: 20210606

REACTIONS (5)
  - Dyspepsia [Not Recovered/Not Resolved]
  - Fatigue [Not Recovered/Not Resolved]
  - Decreased appetite [Not Recovered/Not Resolved]
  - Anaemia [Not Recovered/Not Resolved]
  - Blood calcium decreased [Not Recovered/Not Resolved]

NARRATIVE: CASE EVENT DATE: 202106
